FAERS Safety Report 25723523 (Version 1)
Quarter: 2025Q3

REPORT INFORMATION
  Report Type: Spontaneous
  Country: EU (occurrence: EU)
  Receive Date: 20250825
  Receipt Date: 20250825
  Transmission Date: 20251021
  Serious: Yes (Other)
  Sender: NOVO NORDISK
  Company Number: EU-NOVOPROD-1505400

PATIENT
  Age: 56 Year
  Sex: Female
  Weight: 121.6 kg

DRUGS (1)
  1. WEGOVY [Suspect]
     Active Substance: SEMAGLUTIDE
     Indication: Obesity
     Dosage: 1 MG, QW

REACTIONS (3)
  - Skin atrophy [Recovering/Resolving]
  - Skin laxity [Recovering/Resolving]
  - Abnormal loss of weight [Unknown]
